FAERS Safety Report 7610943-3 (Version None)
Quarter: 2011Q3

REPORT INFORMATION
  Report Type: 
  Country: None (occurrence: None)
  Receive Date: 20110715
  Receipt Date: 20110701
  Transmission Date: 20111222
  Serious: Yes (Hospitalization, Other)
  Sender: FDA-Public Use
  Company Number: PHHY2011VE29598

PATIENT
  Sex: Female

DRUGS (11)
  1. AMITRIPTYLINE HCL [Concomitant]
     Dosage: ONCE DAILY
     Route: 048
     Dates: start: 20110608
  2. GLUCOSAMINE [Concomitant]
     Dosage: ONCE DAILY
     Route: 048
     Dates: start: 20110608
  3. ZOLEDRONOC ACID [Suspect]
     Dosage: 5 MG PER YEAR
     Route: 042
     Dates: start: 20110616
  4. CELEBREX [Concomitant]
     Dosage: ONCE DAILY
     Route: 048
     Dates: start: 20110608
  5. ZOLOFT [Concomitant]
     Dosage: 0.5 DF, QD
     Route: 048
  6. PREGABALIN [Concomitant]
     Dosage: ONCE DAILY
     Route: 048
     Dates: start: 20110608
  7. NEXIUM [Concomitant]
     Dosage: 40 MG, QD
     Route: 048
  8. FORADIL [Concomitant]
     Indication: ASTHMA
     Dosage: TWICE DAILY
  9. ZOLEDRONOC ACID [Suspect]
     Indication: OSTEOPOROSIS
     Dosage: 5 MG PER YEAR
     Route: 042
     Dates: start: 20100612
  10. ZOLOFT [Concomitant]
     Dosage: 1 DF, QD
  11. CALCIUM W/MAGNESIUM [Concomitant]
     Dosage: TWICE DAILY
     Route: 048
     Dates: start: 20110608

REACTIONS (2)
  - POST PROCEDURAL INFECTION [None]
  - SPINAL DISORDER [None]
